FAERS Safety Report 8109775-1 (Version None)
Quarter: 2012Q1

REPORT INFORMATION
  Report Type: 
  Country: None (occurrence: None)
  Receive Date: 20120202
  Receipt Date: 20120123
  Transmission Date: 20120608
  Serious: Yes (Hospitalization)
  Sender: FDA-Public Use
  Company Number: FR-ELI_LILLY_AND_COMPANY-FR201201006332

PATIENT
  Age: 63 Year
  Sex: Female

DRUGS (18)
  1. PANTOPRAZOLE [Concomitant]
     Dosage: UNK
  2. UMULINE [Suspect]
     Dosage: UNK
     Route: 058
     Dates: start: 20111122, end: 20111122
  3. ECONAZOLE NITRATE [Concomitant]
     Dosage: UNK
  4. PYOSTACINE [Concomitant]
     Dosage: 500 MG, BID
     Route: 048
     Dates: start: 20111121, end: 20111122
  5. CEFTRIAXONE                        /00672202/ [Concomitant]
     Dosage: UNK
  6. LERCANIDIPINE [Concomitant]
     Dosage: UNK
  7. VICTOZA [Concomitant]
     Dosage: UNK
  8. INDAPAMIDE [Concomitant]
     Dosage: UNK
  9. UN-ALFA [Concomitant]
     Dosage: UNK
  10. JANUVIA [Concomitant]
     Dosage: UNK
  11. TRAMADOL HCL [Concomitant]
     Dosage: UNK
  12. AMYCOR [Concomitant]
     Dosage: UNK
  13. OFLOXACIN [Concomitant]
     Dosage: UNK
     Route: 050
     Dates: start: 20111122, end: 20111124
  14. TRAMADOL HCL [Concomitant]
     Dosage: 100 MG, BID
     Route: 048
     Dates: start: 20111120, end: 20111125
  15. SPASFON [Concomitant]
     Dosage: UNK
  16. XYZAL [Concomitant]
     Dosage: UNK
     Dates: start: 20111125
  17. GAVISCON                           /00237601/ [Concomitant]
     Dosage: UNK
  18. TRANXENE [Concomitant]
     Dosage: UNK

REACTIONS (4)
  - RASH ERYTHEMATOUS [None]
  - CONFUSIONAL STATE [None]
  - EYELID OEDEMA [None]
  - PRURITUS [None]
